FAERS Safety Report 8960973 (Version 1)
Quarter: 2012Q4

REPORT INFORMATION
  Report Type: 
  Country: CN (occurrence: CN)
  Receive Date: 20121212
  Receipt Date: 20121212
  Transmission Date: 20130627
  Serious: Yes (Other)
  Sender: FDA-Public Use
  Company Number: PHHY2012CN109379

PATIENT
  Age: 63 Year
  Sex: Female
  Weight: 60 kg

DRUGS (1)
  1. MIACALCIC / SALMON CALCITONIN [Suspect]
     Indication: ARRHYTHMIA
     Dosage: 50 IU, once, every day
     Route: 030
     Dates: start: 20110602, end: 20110602

REACTIONS (4)
  - Malaise [Recovered/Resolved]
  - Hypoaesthesia oral [Recovered/Resolved]
  - Vomiting [Recovered/Resolved]
  - Headache [Recovered/Resolved]
